FAERS Safety Report 8917339 (Version 1)
Quarter: 2012Q4

REPORT INFORMATION
  Report Type: 
  Country: GR (occurrence: GR)
  Receive Date: 20121120
  Receipt Date: 20121120
  Transmission Date: 20130627
  Serious: Yes (Other)
  Sender: FDA-Public Use
  Company Number: GR-PFIZER INC-2012282677

PATIENT
  Age: 78 Year
  Sex: Male

DRUGS (1)
  1. METHYLPREDNISOLONE [Suspect]
     Indication: TEMPORAL ARTERITIS
     Dosage: 16 mg, daily
     Route: 048

REACTIONS (1)
  - Arthritis bacterial [Recovered/Resolved]
